FAERS Safety Report 5804272-8 (Version None)
Quarter: 2008Q3

REPORT INFORMATION
  Report Type: 
  Country: None (occurrence: None)
  Receive Date: 20080707
  Receipt Date: 20080630
  Transmission Date: 20090109
  Serious: Yes (Death)
  Sender: FDA-Public Use
  Company Number: 2008-02386

PATIENT
  Age: 52 Year
  Sex: Male
  Weight: 56 kg

DRUGS (5)
  1. VELCADE [Suspect]
     Indication: MULTIPLE MYELOMA
     Dosage: 2 MG, INTRAVENOUS
     Route: 042
     Dates: start: 20070921, end: 20071029
  2. BACTRIM [Concomitant]
  3. ZANTAC [Concomitant]
  4. LIPITOR [Concomitant]
  5. URSO 250 [Concomitant]

REACTIONS (5)
  - DISEASE PROGRESSION [None]
  - HYPOAESTHESIA [None]
  - NAUSEA [None]
  - PLATELET COUNT DECREASED [None]
  - STOMACH DISCOMFORT [None]
